FAERS Safety Report 15124726 (Version 2)
Quarter: 2018Q3

REPORT INFORMATION
  Report Type: Spontaneous
  Country: CH (occurrence: CH)
  Receive Date: 20180710
  Receipt Date: 20180726
  Transmission Date: 20181010
  Serious: Yes (Other)
  Sender: FDA-Public Use
  Company Number: CH-BRISTOL-MYERS SQUIBB COMPANY-BMS-2018-060860

PATIENT
  Age: 51 Year
  Sex: Male

DRUGS (1)
  1. IPILIMUMAB [Suspect]
     Active Substance: IPILIMUMAB
     Indication: MALIGNANT NEOPLASM PROGRESSION
     Dosage: UNK
     Route: 065

REACTIONS (3)
  - Hypophysitis [Recovering/Resolving]
  - Gonadotrophin deficiency [Recovered/Resolved]
  - Hypothalamo-pituitary disorder [Not Recovered/Not Resolved]
